FAERS Safety Report 23928710 (Version 1)
Quarter: 2024Q2

REPORT INFORMATION
  Report Type: Spontaneous
  Country: US (occurrence: US)
  Receive Date: 20240531
  Receipt Date: 20240531
  Transmission Date: 20240716
  Serious: No
  Sender: FDA-Public Use
  Company Number: US-RADIUS HEALTH, INC.-2023US005627

PATIENT
  Sex: Female

DRUGS (2)
  1. TYMLOS [Suspect]
     Active Substance: ABALOPARATIDE
     Indication: Product used for unknown indication
     Dosage: 80 MCG, DAILY
  2. TYMLOS [Suspect]
     Active Substance: ABALOPARATIDE
     Dosage: 40MCG, DAILY

REACTIONS (8)
  - Sensory disturbance [Unknown]
  - Illness [Unknown]
  - Dizziness [Unknown]
  - Asthenia [Unknown]
  - Palpitations [Not Recovered/Not Resolved]
  - Intentional product misuse [Unknown]
  - Product administered at inappropriate site [Unknown]
  - Product dose omission issue [Unknown]
